FAERS Safety Report 5883032-6 (Version None)
Quarter: 2008Q3

REPORT INFORMATION
  Report Type: 
  Country: None (occurrence: None)
  Receive Date: 20080913
  Receipt Date: 20080829
  Transmission Date: 20090109
  Serious: No
  Sender: FDA-Public Use
  Company Number: US-ABBOTT-08P-163-0472239-00

PATIENT
  Sex: Female
  Weight: 68.1 kg

DRUGS (2)
  1. HUMIRA [Suspect]
     Indication: PSORIATIC ARTHROPATHY
     Route: 058
     Dates: start: 20080701, end: 20080825
  2. MELOXICAM [Concomitant]
     Indication: PSORIATIC ARTHROPATHY

REACTIONS (4)
  - BACK PAIN [None]
  - DRUG INEFFECTIVE [None]
  - HEADACHE [None]
  - JOINT STIFFNESS [None]
